FAERS Safety Report 9862358 (Version 2)
Quarter: 2014Q1

REPORT INFORMATION
  Report Type: Report from Study
  Country: US (occurrence: US)
  Receive Date: 20140203
  Receipt Date: 20140203
  Transmission Date: 20141002
  Serious: Yes (Hospitalization, Other)
  Sender: FDA-Public Use
  Company Number: US-PFIZER INC-2014022935

PATIENT
  Age: 65 Year
  Sex: Male

DRUGS (4)
  1. FLUOROURACIL [Suspect]
     Indication: ADENOCARCINOMA OF COLON
     Dosage: 15-18 MG/KG/DAY, EVERY 4 WEEKS
     Route: 040
  2. FLUOROURACIL [Suspect]
     Dosage: 21 MG/KG, CYCLIC
     Route: 040
  3. FLUOROURACIL [Suspect]
     Dosage: 24 MG/KG, FOR 5 DAYS
     Route: 040
  4. ALLOPURINOL [Concomitant]
     Dosage: 300 MG EVERY 8 HOURS, 21 DAYS PRIOR TO FU
     Route: 048

REACTIONS (2)
  - Neurotoxicity [Not Recovered/Not Resolved]
  - White blood cell count decreased [Recovered/Resolved]
